FAERS Safety Report 10051892 (Version 2)
Quarter: 2014Q2

REPORT INFORMATION
  Report Type: Spontaneous
  Country: IL (occurrence: IL)
  Receive Date: 20140402
  Receipt Date: 20140505
  Transmission Date: 20141212
  Serious: Yes (Hospitalization)
  Sender: FDA-Public Use
  Company Number: IL-BIOGENIDEC-2014BI029353

PATIENT
  Age: 26 Year
  Sex: Female

DRUGS (1)
  1. TYSABRI [Suspect]
     Indication: PRODUCT USED FOR UNKNOWN INDICATION
     Route: 042
     Dates: start: 20131222

REACTIONS (9)
  - Optic neuritis [Unknown]
  - Depression [Unknown]
  - Suicidal ideation [Unknown]
  - Decreased appetite [Unknown]
  - Anhedonia [Unknown]
  - Decreased interest [Unknown]
  - Weight decreased [Unknown]
  - Systemic lupus erythematosus rash [Unknown]
  - Nuclear magnetic resonance imaging abnormal [Unknown]
